FAERS Safety Report 22530614 (Version 1)
Quarter: 2023Q2

REPORT INFORMATION
  Report Type: Report from Study
  Country: CO (occurrence: CO)
  Receive Date: 20230607
  Receipt Date: 20230607
  Transmission Date: 20230722
  Serious: Yes (Hospitalization)
  Sender: FDA-Public Use
  Company Number: CO-ABBVIE-2316288US

PATIENT
  Sex: Female
  Weight: 70 kg

DRUGS (1)
  1. BOTOX [Suspect]
     Active Substance: ONABOTULINUMTOXINA
     Indication: Migraine
     Dosage: TIME INTERVAL: AS NECESSARY
     Route: 030
     Dates: start: 20230109, end: 20230109

REACTIONS (12)
  - Unevaluable event [Not Recovered/Not Resolved]
  - Headache [Not Recovered/Not Resolved]
  - Abdominal pain upper [Not Recovered/Not Resolved]
  - Mobility decreased [Not Recovered/Not Resolved]
  - Pain of skin [Not Recovered/Not Resolved]
  - Diarrhoea [Not Recovered/Not Resolved]
  - Headache [Recovered/Resolved]
  - Abdominal pain upper [Recovered/Resolved]
  - Mobility decreased [Recovered/Resolved]
  - Photophobia [Not Recovered/Not Resolved]
  - Diarrhoea [Recovered/Resolved]
  - Pain of skin [Recovered/Resolved]

NARRATIVE: CASE EVENT DATE: 20220101
